FAERS Safety Report 9916359 (Version 1)
Quarter: 2014Q1

REPORT INFORMATION
  Report Type: Spontaneous
  Country: IT (occurrence: IT)
  Receive Date: 20140221
  Receipt Date: 20140221
  Transmission Date: 20141002
  Serious: Yes (Other)
  Sender: FDA-Public Use
  Company Number: PHHY2014IT021241

PATIENT
  Age: 70 Year
  Sex: Female

DRUGS (1)
  1. ZOMETA [Suspect]
     Indication: NEOPLASM
     Dosage: 4 MG, CYCLIC
     Route: 042
     Dates: start: 20120901, end: 20130813

REACTIONS (1)
  - Osteonecrosis of jaw [Not Recovered/Not Resolved]
